FAERS Safety Report 5307253-6 (Version None)
Quarter: 2007Q2

REPORT INFORMATION
  Report Type: 
  Country: None (occurrence: None)
  Receive Date: 20070425
  Receipt Date: 20070419
  Transmission Date: 20071010
  Serious: Yes (Other)
  Sender: FDA-Public Use
  Company Number: JP-JPN-A200701275

PATIENT
  Age: 8 Year
  Sex: Male
  Weight: 21 kg

DRUGS (7)
  1. RELENZA [Suspect]
     Dosage: 10MG TWICE PER DAY
     Route: 055
     Dates: start: 20070316, end: 20070319
  2. ASVERIN [Concomitant]
     Indication: INFLUENZA
     Dosage: .6G PER DAY
     Route: 048
     Dates: start: 20070316, end: 20070319
  3. MUCODYNE [Concomitant]
     Indication: INFLUENZA
     Dosage: 1.2G PER DAY
     Route: 048
     Dates: start: 20070316, end: 20070319
  4. MUCOSOLVAN [Concomitant]
     Indication: INFLUENZA
     Dosage: 1.2G PER DAY
     Route: 048
     Dates: start: 20070316, end: 20070319
  5. TRANSAMIN [Concomitant]
     Indication: INFLUENZA
     Dosage: 1.2G PER DAY
     Route: 048
     Dates: start: 20070316, end: 20070319
  6. CALONAL [Concomitant]
     Indication: INFLUENZA
     Dosage: 1.05G PER DAY
     Route: 048
  7. BIO THREE [Concomitant]
     Indication: INFLUENZA
     Dosage: 1.98G PER DAY
     Route: 048
     Dates: start: 20070316, end: 20070319

REACTIONS (4)
  - DELIRIUM [None]
  - HALLUCINATION [None]
  - HYPERTHERMIA [None]
  - SCREAMING [None]
